FAERS Safety Report 24392581 (Version 2)
Quarter: 2024Q4

REPORT INFORMATION
  Report Type: Spontaneous
  Country: US (occurrence: US)
  Receive Date: 20241003
  Receipt Date: 20241025
  Transmission Date: 20250114
  Serious: Yes (Other)
  Sender: TEVA
  Company Number: US-TEVA-VS-3248616

PATIENT
  Age: 84 Year
  Sex: Female

DRUGS (3)
  1. DILTIAZEM [Suspect]
     Active Substance: DILTIAZEM
     Indication: Palpitations
     Dosage: IN THE EVENING
     Route: 065
  2. METOPROLOL [Suspect]
     Active Substance: METOPROLOL
     Indication: Palpitations
     Dosage: IN THE MORNING
     Route: 065
  3. FLECAINIDE [Suspect]
     Active Substance: FLECAINIDE
     Indication: Palpitations
     Route: 065

REACTIONS (8)
  - Atrial conduction time prolongation [Recovered/Resolved]
  - Toxicity to various agents [Recovered/Resolved]
  - Drug ineffective [Unknown]
  - Sinus bradycardia [Recovering/Resolving]
  - Bradycardia [Recovering/Resolving]
  - Vision blurred [Unknown]
  - Balance disorder [Unknown]
  - Nausea [Unknown]
